FAERS Safety Report 7316122-1 (Version None)
Quarter: 2011Q1

REPORT INFORMATION
  Report Type: 
  Country: None (occurrence: None)
  Receive Date: 20110225
  Receipt Date: 20110225
  Transmission Date: 20110831
  Serious: Yes (Life-Threatening, Hospitalization)
  Sender: FDA-Public Use
  Company Number: JP-JNJFOC-20110106264

PATIENT
  Sex: Female
  Weight: 57 kg

DRUGS (9)
  1. GOSHA-JINKI-GAN [Concomitant]
     Indication: NEUROPATHY PERIPHERAL
     Route: 048
  2. MAGNESIUM OXIDE [Concomitant]
     Indication: CONSTIPATION
     Route: 048
  3. DOXIL [Suspect]
     Route: 042
  4. METHYCOBAL [Concomitant]
     Indication: NEUROPATHY PERIPHERAL
     Route: 048
  5. NORVASC [Concomitant]
     Indication: HYPERTENSION
     Route: 048
  6. MUCOSTA [Concomitant]
     Indication: PROPHYLAXIS
     Route: 048
  7. DAI-KENCHU-TO [Concomitant]
     Indication: CONSTIPATION
     Route: 048
  8. DOXIL [Suspect]
     Indication: OVARIAN CANCER RECURRENT
     Route: 042
  9. HUMULIN R [Concomitant]
     Indication: DIABETES MELLITUS
     Route: 065

REACTIONS (9)
  - DISSEMINATED INTRAVASCULAR COAGULATION [None]
  - INTERSTITIAL LUNG DISEASE [None]
  - DECREASED APPETITE [None]
  - HEPATIC FUNCTION ABNORMAL [None]
  - PANCYTOPENIA [None]
  - MALAISE [None]
  - BLOOD PRESSURE DECREASED [None]
  - DEHYDRATION [None]
  - BONE MARROW FAILURE [None]
